FAERS Safety Report 5041869-X (Version None)
Quarter: 2006Q2

REPORT INFORMATION
  Report Type: 
  Country: None (occurrence: None)
  Receive Date: 20060627
  Receipt Date: 20060614
  Transmission Date: 20061013
  Serious: Yes (Other)
  Sender: FDA-Public Use
  Company Number: 2006049985

PATIENT
  Age: 55 Year
  Sex: Female

DRUGS (13)
  1. CELEBREX [Suspect]
     Indication: ARTHRITIS
     Dosage: 400 MG (200 MG, 2 IN 1 D), ORAL
     Route: 048
     Dates: start: 20050101
  2. TOPAMAX [Suspect]
     Indication: MIGRAINE
     Dosage: 2 IN 1 D
     Dates: start: 20051201
  3. CONTRAST MEDIA (CONTRAST MEDIA) [Suspect]
     Indication: SCAN WITH CONTRAST
     Dosage: 1 IN 1 D, ORAL
     Route: 048
     Dates: start: 20060403, end: 20060403
  4. KLONOPIN [Concomitant]
  5. DICYCLOMINE [Concomitant]
  6. CELEXA [Concomitant]
  7. IMITREX [Concomitant]
  8. LORATADINE [Concomitant]
  9. LISINOPRIL [Concomitant]
  10. UNIFIBER (FIBRE, DIETARY) [Concomitant]
  11. STOOL SOFTENER (DOCUSATE SODIUM) [Concomitant]
  12. POLYETHYLENE GLYCOL [Concomitant]
  13. MAGNESIUM CITRATE [Concomitant]

REACTIONS (16)
  - ACTIVITIES OF DAILY LIVING IMPAIRED [None]
  - ARTHRALGIA [None]
  - BILE DUCT OBSTRUCTION [None]
  - BLADDER DISORDER [None]
  - BLOOD POTASSIUM DECREASED [None]
  - BLOOD URINE PRESENT [None]
  - DIFFICULTY IN WALKING [None]
  - DIZZINESS [None]
  - DRUG EFFECT DECREASED [None]
  - DRUG INEFFECTIVE [None]
  - DYSURIA [None]
  - FAECALOMA [None]
  - MIGRAINE [None]
  - RENAL IMPAIRMENT [None]
  - VISION BLURRED [None]
  - WEIGHT DECREASED [None]
